FAERS Safety Report 9507791 (Version 1)
Quarter: 2013Q3

REPORT INFORMATION
  Report Type: Spontaneous
  Country: US (occurrence: None)
  Receive Date: 20130906
  Receipt Date: 20130906
  Transmission Date: 20140515
  Serious: No
  Sender: FDA-Public Use
  Company Number: None

PATIENT
  Age: 45 Year
  Sex: Female
  Weight: 70.31 kg

DRUGS (1)
  1. AFINITOR [Suspect]
     Indication: BREAST CANCER
     Dosage: 10MG DAILY ORAL
     Route: 048
     Dates: start: 20130607, end: 20130904

REACTIONS (7)
  - Stomatitis [None]
  - Oral herpes [None]
  - Nausea [None]
  - Vomiting [None]
  - Diarrhoea [None]
  - Headache [None]
  - Epistaxis [None]
